FAERS Safety Report 9417162 (Version 1)
Quarter: 2013Q3

REPORT INFORMATION
  Report Type: Spontaneous
  Country: PL (occurrence: PL)
  Receive Date: 20130724
  Receipt Date: 20130724
  Transmission Date: 20140515
  Serious: Yes (Hospitalization)
  Sender: FDA-Public Use
  Company Number: PL-TEVA-420485ISR

PATIENT
  Age: 30 Year
  Sex: 0
  Weight: 80 kg

DRUGS (3)
  1. HYDROXYZINE [Suspect]
  2. PERNAZIN [Concomitant]
     Indication: POISONING
  3. ARKETIS [Concomitant]
     Indication: POISONING

REACTIONS (1)
  - Loss of consciousness [Recovered/Resolved]
